FAERS Safety Report 7975769-X (Version None)
Quarter: 2011Q4

REPORT INFORMATION
  Report Type: 
  Country: None (occurrence: None)
  Receive Date: 20111213
  Receipt Date: 20110920
  Transmission Date: 20120403
  Serious: No
  Sender: FDA-Public Use
  Company Number: US-AMGEN-USASP2011048587

PATIENT
  Sex: Female

DRUGS (2)
  1. ENBREL [Suspect]
     Indication: RHEUMATOID ARTHRITIS
     Dosage: 50 MG, QWK
     Dates: start: 20110101
  2. INDOMETHACIN [Concomitant]
     Dosage: 75 MG, UNK

REACTIONS (4)
  - PAIN [None]
  - LIP SWELLING [None]
  - NASAL OEDEMA [None]
  - CONTUSION [None]
